FAERS Safety Report 9222443 (Version 1)
Quarter: 2013Q2

REPORT INFORMATION
  Report Type: Spontaneous
  Country: US (occurrence: US)
  Receive Date: 20130410
  Receipt Date: 20130410
  Transmission Date: 20140414
  Serious: Yes (Other)
  Sender: FDA-Public Use
  Company Number: US-BAYER-2013-042799

PATIENT
  Age: 23 Year
  Sex: Female
  Weight: 72.56 kg

DRUGS (7)
  1. YAZ [Suspect]
  2. GIANVI [Suspect]
  3. CIPROFLOXACIN [Concomitant]
  4. LORAZEPAM [Concomitant]
  5. PREDNISONE [Concomitant]
  6. FUROSEMIDE [Concomitant]
  7. KLOR-CON [Concomitant]

REACTIONS (1)
  - Deep vein thrombosis [Recovered/Resolved]
